FAERS Safety Report 6249933-4 (Version None)
Quarter: 2009Q2

REPORT INFORMATION
  Report Type: 
  Country: None (occurrence: None)
  Receive Date: 20090629
  Receipt Date: 20090618
  Transmission Date: 20091009
  Serious: Yes (Hospitalization)
  Sender: FDA-Public Use
  Company Number: FR-BAXTER-2009BH010434

PATIENT
  Age: 51 Year
  Sex: Male

DRUGS (7)
  1. ENDOXAN BAXTER [Suspect]
     Indication: BURKITT'S LYMPHOMA
     Route: 042
     Dates: start: 20080228, end: 20080301
  2. MABTHERA [Suspect]
     Indication: BURKITT'S LYMPHOMA
     Route: 042
     Dates: start: 20080226, end: 20080226
  3. MABTHERA [Suspect]
     Route: 042
     Dates: start: 20080303, end: 20080303
  4. METHOTREXATE GENERIC [Suspect]
     Indication: BURKITT'S LYMPHOMA
     Route: 042
     Dates: start: 20080227, end: 20080227
  5. VINCRISTINE SULFATE [Suspect]
     Indication: BURKITT'S LYMPHOMA
     Route: 042
     Dates: start: 20080227, end: 20080227
  6. PREDNISOLONE [Suspect]
     Indication: BURKITT'S LYMPHOMA
     Route: 042
     Dates: start: 20080227, end: 20080303
  7. DOXORUBICIN HYDROCHLORIDE [Suspect]
     Indication: BURKITT'S LYMPHOMA
     Route: 042
     Dates: start: 20080228, end: 20080228

REACTIONS (2)
  - FEBRILE BONE MARROW APLASIA [None]
  - STAPHYLOCOCCAL SEPSIS [None]
